FAERS Safety Report 21404171 (Version 4)
Quarter: 2022Q4

REPORT INFORMATION
  Report Type: Report from Study
  Country: DE (occurrence: DE)
  Receive Date: 20221003
  Receipt Date: 20221223
  Transmission Date: 20230112
  Serious: Yes (Hospitalization)
  Sender: FDA-Public Use
  Company Number: DE-PFIZER INC-PV202200073631

PATIENT
  Age: 66 Year
  Sex: Female
  Weight: 73 kg

DRUGS (7)
  1. PALBOCICLIB [Suspect]
     Active Substance: PALBOCICLIB
     Indication: Breast cancer
     Dosage: 125 MG, CYCLIC (DAILY FROM DAY 1 TO DAY 21 EVERY 28-DAY CYCLE)
     Route: 048
     Dates: start: 20220324, end: 20220518
  2. PALBOCICLIB [Suspect]
     Active Substance: PALBOCICLIB
     Dosage: 100 MG, CYCLIC (DAILY FROM DAY 1 TO DAY 21 EVERY 28-DAY CYCLE)
     Route: 048
     Dates: start: 20220601, end: 20220621
  3. LETROZOLE [Suspect]
     Active Substance: LETROZOLE
     Indication: Breast cancer
     Dosage: 2.5 MG, DAILY
     Route: 048
     Dates: start: 20220324
  4. JANUVIA [Concomitant]
     Active Substance: SITAGLIPTIN PHOSPHATE
     Indication: Diabetes mellitus
     Dosage: UNK
     Route: 048
     Dates: start: 2018, end: 202207
  5. METOPROLOL SUCCINATE [Concomitant]
     Active Substance: METOPROLOL SUCCINATE
     Indication: Hypertension
     Dosage: UNK
     Route: 048
  6. ASPIRIN [Concomitant]
     Active Substance: ASPIRIN
     Indication: Hypertension
     Dosage: UNK
     Route: 048
     Dates: start: 2003
  7. LEVOTHYROXINE SODIUM [Concomitant]
     Active Substance: LEVOTHYROXINE SODIUM
     Indication: Hypothyroidism
     Dosage: UNK
     Route: 048
     Dates: start: 2000

REACTIONS (1)
  - Pancytopenia [Recovered/Resolved]

NARRATIVE: CASE EVENT DATE: 20220627
